FAERS Safety Report 8020113-5 (Version None)
Quarter: 2012Q1

REPORT INFORMATION
  Report Type: 
  Country: None (occurrence: None)
  Receive Date: 20120103
  Receipt Date: 20111229
  Transmission Date: 20120608
  Serious: Yes (Hospitalization)
  Sender: FDA-Public Use
  Company Number: BE-ROCHE-1003859

PATIENT
  Age: 44 Year
  Sex: Female
  Weight: 68 kg

DRUGS (4)
  1. XANAX [Concomitant]
     Dates: start: 20110101
  2. ZOMETA [Concomitant]
     Dosage: 04 MONTHLY PER MG
     Dates: start: 20110909
  3. ACETAMINOPHEN AND CODEINE PHOSPHATE [Concomitant]
     Dates: start: 20110101
  4. VEMURAFENIB [Suspect]
     Indication: METASTATIC MALIGNANT MELANOMA
     Dosage: LAST DOSE PRIOR TO SAE 27 DEC 2011
     Route: 048
     Dates: start: 20110909, end: 20111227

REACTIONS (2)
  - EPILEPSY [None]
  - ABDOMINAL PAIN LOWER [None]
